FAERS Safety Report 4555705-9 (Version None)
Quarter: 2005Q1

REPORT INFORMATION
  Report Type: 
  Country: None (occurrence: None)
  Receive Date: 20050119
  Receipt Date: 20050104
  Transmission Date: 20050727
  Serious: Yes (Hospitalization)
  Sender: FDA-Public Use
  Company Number: FR-JNJFOC-20050103340

PATIENT
  Age: 55 Year
  Sex: Female

DRUGS (3)
  1. ZALDIAR [Suspect]
     Indication: DRUG USE FOR UNKNOWN INDICATION
     Route: 049
  2. ZOLOFT [Concomitant]
     Indication: DRUG USE FOR UNKNOWN INDICATION
     Route: 065
  3. KENZEN [Concomitant]
     Route: 065

REACTIONS (5)
  - ERYTHEMA [None]
  - HYPEREOSINOPHILIC SYNDROME [None]
  - PRURITUS [None]
  - RASH [None]
  - RESPIRATORY DISORDER [None]
